FAERS Safety Report 5143126-X (Version None)
Quarter: 2006Q4

REPORT INFORMATION
  Report Type: 
  Country: None (occurrence: None)
  Receive Date: 20061031
  Receipt Date: 20061031
  Transmission Date: 20070319
  Serious: Yes (Other)
  Sender: FDA-Public Use
  Company Number: None

PATIENT
  Age: 68 Year
  Sex: Male
  Weight: 82.5547 kg

DRUGS (1)
  1. VYTORIN [Suspect]
     Indication: HYPERLIPIDAEMIA
     Dosage: ONE TABLET ONCE DAILY PO
     Route: 048
     Dates: start: 20050117, end: 20060915

REACTIONS (3)
  - BREAST MASS [None]
  - GYNAECOMASTIA [None]
  - LIPIDS INCREASED [None]
